FAERS Safety Report 6697861-2 (Version None)
Quarter: 2010Q2

REPORT INFORMATION
  Report Type: 
  Country: None (occurrence: None)
  Receive Date: 20100427
  Receipt Date: 20100413
  Transmission Date: 20101027
  Serious: Yes (Hospitalization)
  Sender: FDA-Public Use
  Company Number: US-BIOGENIDEC-2010BI010363

PATIENT
  Age: 52 Year
  Sex: Female
  Weight: 79 kg

DRUGS (10)
  1. TYSABRI [Suspect]
     Indication: MULTIPLE SCLEROSIS
     Route: 042
     Dates: start: 20060914
  2. TEGRETOL [Concomitant]
     Route: 048
  3. TEGRETOL [Concomitant]
     Route: 048
  4. TEGRETOL [Concomitant]
     Route: 048
  5. TEGRETOL [Concomitant]
     Route: 048
  6. TEGRETOL [Concomitant]
     Route: 048
  7. LYRICA [Concomitant]
  8. LYRICA [Concomitant]
  9. NAMENDA [Concomitant]
     Route: 048
  10. LAMICTAL [Concomitant]
     Route: 048

REACTIONS (8)
  - CENTRAL NERVOUS SYSTEM LESION [None]
  - COORDINATION ABNORMAL [None]
  - DISTURBANCE IN ATTENTION [None]
  - MENTAL IMPAIRMENT [None]
  - MULTIPLE SCLEROSIS RELAPSE [None]
  - MUSCULOSKELETAL DISORDER [None]
  - STAPHYLOCOCCAL INFECTION [None]
  - VISUAL IMPAIRMENT [None]
